FAERS Safety Report 15242625 (Version 1)
Quarter: 2018Q3

REPORT INFORMATION
  Report Type: Spontaneous
  Country: US (occurrence: US)
  Receive Date: 20180806
  Receipt Date: 20180806
  Transmission Date: 20181010
  Serious: Yes (Hospitalization, Other)
  Sender: FDA-Public Use
  Company Number: US-AUROBINDO-AUR-APL-2018-038074

PATIENT
  Age: 37 Year
  Sex: Male

DRUGS (2)
  1. BEVACIZUMAB. [Concomitant]
     Active Substance: BEVACIZUMAB
     Indication: BRAIN STEM GLIOMA
     Dosage: ()
  2. DEXAMETHASONE. [Suspect]
     Active Substance: DEXAMETHASONE
     Indication: BRAIN STEM GLIOMA
     Dosage: UNK
     Route: 065

REACTIONS (10)
  - Rash maculo-papular [Recovering/Resolving]
  - Escherichia infection [Recovering/Resolving]
  - Hypoxia [Recovering/Resolving]
  - Strongyloidiasis [Recovering/Resolving]
  - Dysphonia [Recovering/Resolving]
  - Sputum abnormal [Recovering/Resolving]
  - Cough [Recovering/Resolving]
  - Rhinovirus infection [Recovering/Resolving]
  - Dyspnoea [Recovering/Resolving]
  - Chest pain [Recovering/Resolving]
